FAERS Safety Report 13132547 (Version 2)
Quarter: 2017Q2

REPORT INFORMATION
  Report Type: Spontaneous
  Country: FR (occurrence: FR)
  Receive Date: 20170120
  Receipt Date: 20170413
  Transmission Date: 20170830
  Serious: Yes (Life-Threatening)
  Sender: FDA-Public Use
  Company Number: FR-ASTRAZENECA-2017SE04655

PATIENT
  Age: 16551 Day
  Sex: Male

DRUGS (9)
  1. OFLOCET [Suspect]
     Active Substance: OFLOXACIN
     Route: 065
     Dates: start: 20161201, end: 20161215
  2. PRINCI B [Suspect]
     Active Substance: PYRIDOXINE\THIAMINE
     Route: 065
     Dates: start: 20161119, end: 20161224
  3. NICOPATCH [Suspect]
     Active Substance: NICOTINE
     Route: 065
     Dates: start: 20161119, end: 20161224
  4. VALIUM [Suspect]
     Active Substance: DIAZEPAM
     Route: 065
     Dates: start: 20161201, end: 20161224
  5. AOTAL [Suspect]
     Active Substance: ACAMPROSATE CALCIUM
     Route: 065
     Dates: start: 20161201, end: 20161224
  6. GARDENAL [Suspect]
     Active Substance: PHENOBARBITAL
     Indication: ALCOHOLIC SEIZURE
     Route: 065
     Dates: start: 20161129, end: 20161224
  7. VALIUM [Suspect]
     Active Substance: DIAZEPAM
     Route: 065
     Dates: start: 20161226, end: 20161228
  8. INEXIUM [Suspect]
     Active Substance: ESOMEPRAZOLE
     Route: 048
     Dates: start: 20161119, end: 20161224
  9. TOPALGIC SR [Suspect]
     Active Substance: TRAMADOL
     Dosage: TWO TIMES A DAY IF NEEDED
     Route: 065
     Dates: start: 20161119, end: 20161224

REACTIONS (3)
  - Dysphagia [Unknown]
  - Drug reaction with eosinophilia and systemic symptoms [Recovered/Resolved]
  - Hepatocellular injury [Recovered/Resolved]

NARRATIVE: CASE EVENT DATE: 20161215
